FAERS Safety Report 8438839-8 (Version None)
Quarter: 2012Q2

REPORT INFORMATION
  Report Type: 
  Country: None (occurrence: None)
  Receive Date: 20120615
  Receipt Date: 20120607
  Transmission Date: 20120825
  Serious: Yes (Other)
  Sender: FDA-Public Use
  Company Number: IE-US-EMD SERONO, INC.-7138865

PATIENT
  Sex: Male

DRUGS (4)
  1. REBIF [Suspect]
     Indication: RELAPSING-REMITTING MULTIPLE SCLEROSIS
     Route: 058
     Dates: start: 19990109
  2. AMITRIPTOLENE (AMITRIPTYLINE) [Concomitant]
     Indication: MUSCLE SPASMS
     Route: 048
     Dates: start: 20030101
  3. NEURONTIN [Concomitant]
     Route: 048
     Dates: start: 20030101
  4. NEURONTIN [Concomitant]
     Indication: BURNING SENSATION
     Route: 048
     Dates: start: 20030101

REACTIONS (2)
  - PROSTATE CANCER [None]
  - PROSTATIC SPECIFIC ANTIGEN INCREASED [None]
